FAERS Safety Report 23806102 (Version 1)
Quarter: 2024Q2

REPORT INFORMATION
  Report Type: Spontaneous
  Country: US (occurrence: US)
  Receive Date: 20240502
  Receipt Date: 20240502
  Transmission Date: 20240716
  Serious: No
  Sender: FDA-Public Use
  Company Number: US-HALEON-2166966

PATIENT

DRUGS (3)
  1. NICODERM CQ [Suspect]
     Active Substance: NICOTINE
     Indication: Product used for unknown indication
     Route: 065
  2. NICODERM CQ [Suspect]
     Active Substance: NICOTINE
  3. NICODERM CQ [Suspect]
     Active Substance: NICOTINE

REACTIONS (3)
  - Pruritus [Not Recovered/Not Resolved]
  - Rash macular [Unknown]
  - Drug hypersensitivity [Unknown]
